FAERS Safety Report 11329002 (Version 1)
Quarter: 2015Q3

REPORT INFORMATION
  Report Type: Report from Study
  Country: JP (occurrence: JP)
  Receive Date: 20150802
  Receipt Date: 20150802
  Transmission Date: 20151125
  Serious: Yes (Death)
  Sender: FDA-Public Use
  Company Number: JP-TEVA-582620ISR

PATIENT
  Age: 61 Year
  Sex: Male

DRUGS (1)
  1. FILGRASTIM BS INJ. ^NK^ (FILGRASTIM (GENETICAL RECOMBINATION)) [Suspect]
     Active Substance: FILGRASTIM
     Indication: NEUTROPENIA
     Dosage: 450 MICROGRAM/M2 DAILY;
     Route: 042
     Dates: start: 20141203, end: 20150130

REACTIONS (2)
  - Back pain [Recovered/Resolved]
  - Circulatory collapse [Fatal]

NARRATIVE: CASE EVENT DATE: 20150107
